FAERS Safety Report 14597193 (Version 1)
Quarter: 2018Q1

REPORT INFORMATION
  Report Type: Spontaneous
  Country: SK (occurrence: SK)
  Receive Date: 20180305
  Receipt Date: 20180305
  Transmission Date: 20180509
  Serious: Yes (Other)
  Sender: FDA-Public Use
  Company Number: SK-ROCHE-2078498

PATIENT
  Age: 68 Year
  Sex: Female

DRUGS (8)
  1. BEVACIZUMAB. [Suspect]
     Active Substance: BEVACIZUMAB
     Indication: COLORECTAL CANCER METASTATIC
     Dosage: UNK, CYCLIC WITH OXALIPLATIN AND CAPECITABINE (XELOX REGIMEN), FOR 6 CYCLES
     Route: 065
     Dates: start: 20150301
  2. CAPECITABINE. [Suspect]
     Active Substance: CAPECITABINE
     Dosage: UNK, CYCLIC 1ST LINE WITH CAPECITABINE (XELOX REGIMEN), FOR 6 CYCLES
     Route: 065
     Dates: start: 20150301
  3. OXALIPLATIN. [Suspect]
     Active Substance: OXALIPLATIN
     Indication: COLORECTAL CANCER METASTATIC
     Dosage: CYCLIC 1ST LINE WITH CAPECITABINE (XELOX REGIMEN)
     Route: 065
     Dates: start: 20150301
  4. OXALIPLATIN. [Suspect]
     Active Substance: OXALIPLATIN
     Dosage: CYCLIC (REINDUCTION OF XELOX REGIMEN WITH BEVACIZUMAB) FOR 4 MONTHS
     Route: 065
     Dates: end: 20160601
  5. CAPECITABINE. [Suspect]
     Active Substance: CAPECITABINE
     Dosage: UNK UNK, CYCLIC (WITH BEVACIZUMAB), FOR 6 MONTHS
     Route: 065
     Dates: end: 20160201
  6. BEVACIZUMAB. [Suspect]
     Active Substance: BEVACIZUMAB
     Dosage: UNK, CYCLIC (REINDUCTION OF XELOX REGIMEN WITH BEVACIZUMAB), FOR 4 MONTHS
     Route: 065
     Dates: end: 20160601
  7. BEVACIZUMAB. [Suspect]
     Active Substance: BEVACIZUMAB
     Dosage: UNK, CYCLIC WITH CAPECITABINE), FOR 6 MONTHS
     Route: 065
     Dates: end: 20160201
  8. CAPECITABINE. [Suspect]
     Active Substance: CAPECITABINE
     Indication: COLORECTAL CANCER METASTATIC
     Dosage: UNK, CYCLIC (REINDUCTION OF XELOX REGIMEN WITH BEVACIZUMAB) FOR 4 MONTHS
     Route: 065
     Dates: end: 20160601

REACTIONS (3)
  - Neoplasm progression [Unknown]
  - Thrombocytopenia [Unknown]
  - Neuropathy peripheral [Unknown]

NARRATIVE: CASE EVENT DATE: 20160601
